FAERS Safety Report 24108074 (Version 1)
Quarter: 2024Q3

REPORT INFORMATION
  Report Type: Report from Study
  Country: US (occurrence: None)
  Receive Date: 20240718
  Receipt Date: 20240718
  Transmission Date: 20241016
  Serious: Yes (Hospitalization)
  Sender: ASTRAZENECA
  Company Number: 2020SF31798

PATIENT
  Sex: Female

DRUGS (16)
  1. TAGRISSO [Suspect]
     Active Substance: OSIMERTINIB
     Indication: Lung neoplasm malignant
     Route: 048
     Dates: start: 20171231
  2. AMOXICILLIN [Concomitant]
     Active Substance: AMOXICILLIN
  3. CALCIUM [Concomitant]
     Active Substance: CALCIUM
  4. CALCIUM CITRATE-VIT D3 [Concomitant]
  5. COMPAZINE [Concomitant]
     Active Substance: PROCHLORPERAZINE MALEATE
  6. CORDRAN [Concomitant]
     Active Substance: FLURANDRENOLIDE
  7. VITAMINS [Concomitant]
     Active Substance: VITAMINS
  8. DEXAMETHASONE [Concomitant]
     Active Substance: DEXAMETHASONE
  9. IBUPROFEN [Concomitant]
     Active Substance: IBUPROFEN
  10. VITAMINS [Concomitant]
     Active Substance: VITAMINS
  11. NEURONTIN [Concomitant]
     Active Substance: GABAPENTIN
  12. PROVENTIL HFA [Concomitant]
     Active Substance: ALBUTEROL SULFATE
  13. SYNTHROID [Concomitant]
     Active Substance: LEVOTHYROXINE SODIUM
  14. TRAZODONE HCL [Concomitant]
     Active Substance: TRAZODONE HYDROCHLORIDE
  15. TYLENOL ARTHRITIS PAIN [Concomitant]
     Active Substance: ACETAMINOPHEN
  16. ZOFRAN [Concomitant]
     Active Substance: ONDANSETRON HYDROCHLORIDE

REACTIONS (3)
  - Dehydration [Unknown]
  - Urinary tract infection [Unknown]
  - Syncope [Unknown]
